FAERS Safety Report 6670768-2 (Version None)
Quarter: 2010Q2

REPORT INFORMATION
  Report Type: 
  Country: None (occurrence: None)
  Receive Date: 20100407
  Receipt Date: 20100330
  Transmission Date: 20101027
  Serious: Yes (Other)
  Sender: FDA-Public Use
  Company Number: PHHY2010FR17349

PATIENT
  Sex: Female

DRUGS (2)
  1. EXELON [Suspect]
     Indication: DEMENTIA WITH LEWY BODIES
     Dosage: 4.6 MG, QD
     Route: 062
     Dates: start: 20081101
  2. EXELON [Suspect]
     Dosage: 4.6 MG, QD
     Dates: end: 20100309

REACTIONS (3)
  - APPLICATION SITE HYPERSENSITIVITY [None]
  - LUNG INFECTION [None]
  - SKIN IRRITATION [None]
